FAERS Safety Report 6371313-1 (Version None)
Quarter: 2009Q3

REPORT INFORMATION
  Report Type: 
  Country: None (occurrence: None)
  Receive Date: 20090923
  Receipt Date: 20090912
  Transmission Date: 20100115
  Serious: Yes (Hospitalization, Other)
  Sender: FDA-Public Use
  Company Number: US-BAXTER-2008BH012080

PATIENT
  Age: 20 Month
  Sex: Male

DRUGS (2)
  1. ADVATE [Suspect]
     Indication: HAEMOPHILIA
     Route: 042
     Dates: end: 20080716
  2. FACTOR VIII [Concomitant]
     Indication: HAEMOPHILIA

REACTIONS (4)
  - CEREBRAL HAEMORRHAGE [None]
  - FACTOR VIII INHIBITION [None]
  - HAEMATEMESIS [None]
  - PYREXIA [None]
